FAERS Safety Report 9108251 (Version 1)
Quarter: 2013Q1

REPORT INFORMATION
  Report Type: Report from Study
  Country: US (occurrence: US)
  Receive Date: 20130222
  Receipt Date: 20130222
  Transmission Date: 20140127
  Serious: Yes (Other)
  Sender: FDA-Public Use
  Company Number: US-VERTEX PHARMACEUTICALS INC.-2013-002489

PATIENT
  Sex: Female

DRUGS (4)
  1. VX-950 (TELAPREVIR) [Suspect]
     Indication: HEPATITIS C
     Dosage: 750 MG, TID
     Route: 048
     Dates: start: 20120913, end: 20130215
  2. RIBASPHERE [Suspect]
     Indication: HEPATITIS C
     Dosage: 400MG AM, 600MG PM, QD
     Route: 048
     Dates: start: 20120913, end: 20130215
  3. PEGASYS [Suspect]
     Indication: HEPATITIS C
     Dosage: 180 ?G, QW
     Route: 058
     Dates: start: 20120913, end: 20130215
  4. PROCRIT [Concomitant]
     Indication: ANAEMIA
     Dosage: 40000 IU, QW
     Route: 058
     Dates: start: 20130124

REACTIONS (1)
  - Optic ischaemic neuropathy [Unknown]
